FAERS Safety Report 4974554-0 (Version None)
Quarter: 2006Q2

REPORT INFORMATION
  Report Type: 
  Country: None (occurrence: None)
  Receive Date: 20060410
  Receipt Date: 20060329
  Transmission Date: 20061013
  Serious: Yes (Other)
  Sender: FDA-Public Use
  Company Number: 2006044504

PATIENT
  Sex: Male

DRUGS (2)
  1. ATORVASTATIN CALCIUM [Suspect]
     Indication: HYPERCHOLESTEROLAEMIA
     Dosage: (20 MG), ORAL
     Route: 048
     Dates: start: 20050101, end: 20060301
  2. ALLERGY MEDICATION (ALLERGY MEDICATION) [Concomitant]

REACTIONS (2)
  - TOOTH INFECTION [None]
  - WRONG TECHNIQUE IN DRUG USAGE PROCESS [None]
